FAERS Safety Report 16798252 (Version 1)
Quarter: 2019Q3

REPORT INFORMATION
  Report Type: Spontaneous
  Country: US (occurrence: US)
  Receive Date: 20190722
  Receipt Date: 20190722
  Transmission Date: 20191005
  Serious: No
  Sender: FDA-Public Use
  Company Number: None

PATIENT

DRUGS (1)
  1. CHIRHOSTIM [Suspect]
     Active Substance: SECRETIN HUMAN

REACTIONS (1)
  - Product storage error [None]
